FAERS Safety Report 12316327 (Version 2)
Quarter: 2016Q2

REPORT INFORMATION
  Report Type: Spontaneous
  Country: US (occurrence: US)
  Receive Date: 20160428
  Receipt Date: 20160511
  Transmission Date: 20160815
  Serious: Yes (Hospitalization)
  Sender: FDA-Public Use
  Company Number: US-BIOGEN-2016BI00228602

PATIENT
  Sex: Female

DRUGS (1)
  1. AVONEX [Suspect]
     Active Substance: INTERFERON BETA-1A
     Indication: MULTIPLE SCLEROSIS
     Route: 065
     Dates: start: 20160403

REACTIONS (8)
  - Renal failure [Unknown]
  - Loss of consciousness [Unknown]
  - Multiple sclerosis relapse [Unknown]
  - Contusion [Unknown]
  - Fall [Recovered/Resolved]
  - Memory impairment [Unknown]
  - Laceration [Unknown]
  - Head injury [Unknown]
